FAERS Safety Report 8512146-7 (Version None)
Quarter: 2012Q2

REPORT INFORMATION
  Report Type: 
  Country: None (occurrence: None)
  Receive Date: 20120405
  Receipt Date: 20080805
  Transmission Date: 20120825
  Serious: Yes (Other)
  Sender: FDA-Public Use
  Company Number: PHEH2008US05794

PATIENT
  Age: 68 Year
  Sex: Female

DRUGS (1)
  1. RECLAST [Suspect]
     Indication: OSTEOPOROSIS
     Dosage: INJECTION NOS
     Dates: start: 20080601

REACTIONS (4)
  - INCORRECT DRUG ADMINISTRATION RATE [None]
  - RASH PAPULAR [None]
  - RASH PRURITIC [None]
  - RASH ERYTHEMATOUS [None]
